FAERS Safety Report 23843343 (Version 4)
Quarter: 2024Q4

REPORT INFORMATION
  Report Type: Spontaneous
  Country: US (occurrence: US)
  Receive Date: 20240510
  Receipt Date: 20241004
  Transmission Date: 20250114
  Serious: No
  Sender: CALLIDITAS THERAPEUTICS
  Company Number: US-Calliditas-2024CAL00676

PATIENT
  Age: 53 Year
  Sex: Female
  Weight: 77.6 kg

DRUGS (9)
  1. TARPEYO [Suspect]
     Active Substance: BUDESONIDE
     Indication: IgA nephropathy
     Route: 048
     Dates: start: 20240412
  2. METOPROLOL [Concomitant]
     Active Substance: METOPROLOL
  3. AMLODIPINE [Concomitant]
     Active Substance: AMLODIPINE BESYLATE
  4. LOSARTAN [Concomitant]
     Active Substance: LOSARTAN
  5. ROSUVASTATIN [Concomitant]
     Active Substance: ROSUVASTATIN
  6. METFORMIN [Concomitant]
     Active Substance: METFORMIN HYDROCHLORIDE
  7. VITAMIN D NOS [Concomitant]
     Active Substance: CHOLECALCIFEROL\ERGOCALCIFEROL
  8. WEGOVY [Concomitant]
     Active Substance: SEMAGLUTIDE
  9. PREDNISONE [Concomitant]
     Active Substance: PREDNISONE

REACTIONS (25)
  - Cardiac discomfort [Not Recovered/Not Resolved]
  - Nausea [Not Recovered/Not Resolved]
  - Hypertension [Recovering/Resolving]
  - Cough [Recovered/Resolved]
  - Prescribed underdose [Not Recovered/Not Resolved]
  - Anxiety [Recovered/Resolved]
  - Heart rate increased [Unknown]
  - Dysarthria [Unknown]
  - Feeling jittery [Unknown]
  - Abdominal distension [Unknown]
  - Oedema [Unknown]
  - Nasopharyngitis [Unknown]
  - Dysgeusia [Unknown]
  - Dyspnoea [Recovering/Resolving]
  - Irritability [Recovered/Resolved]
  - Feeling abnormal [Recovered/Resolved]
  - Cushingoid [Unknown]
  - Weight decreased [Unknown]
  - Hirsutism [Unknown]
  - Hair growth abnormal [Unknown]
  - Fatigue [Unknown]
  - Upper respiratory tract infection [Unknown]
  - Infection susceptibility increased [Unknown]
  - Urine albumin/creatinine ratio increased [Unknown]
  - Glycosylated haemoglobin increased [Unknown]

NARRATIVE: CASE EVENT DATE: 20240412
